FAERS Safety Report 24397815 (Version 2)
Quarter: 2024Q4

REPORT INFORMATION
  Report Type: Spontaneous
  Country: FR (occurrence: FR)
  Receive Date: 20241004
  Receipt Date: 20241017
  Transmission Date: 20250114
  Serious: Yes (Hospitalization)
  Sender: FRESENIUS KABI
  Company Number: None

PATIENT
  Age: 53 Year
  Sex: Male
  Weight: 65 kg

DRUGS (12)
  1. LIDOCAINE [Suspect]
     Active Substance: LIDOCAINE
     Indication: Pain
     Dosage: UNK
     Route: 058
     Dates: start: 20240704, end: 20240704
  2. LIDOCAINE [Suspect]
     Active Substance: LIDOCAINE
     Dosage: UNK
     Route: 058
     Dates: start: 20240704, end: 20240704
  3. LIDOCAINE [Suspect]
     Active Substance: LIDOCAINE
     Dosage: UNK
     Route: 058
     Dates: start: 20240704, end: 20240704
  4. LIDOCAINE [Suspect]
     Active Substance: LIDOCAINE
     Dosage: UNK
     Route: 058
     Dates: start: 20240704, end: 20240704
  5. FASTURTEC [Suspect]
     Active Substance: RASBURICASE
     Indication: Leukaemia
     Dosage: 7.5 MILLIGRAM, QD
     Route: 042
     Dates: start: 20240703, end: 20240704
  6. FASTURTEC [Suspect]
     Active Substance: RASBURICASE
     Dosage: 7.5 MILLIGRAM, QD
     Route: 042
     Dates: start: 20240703, end: 20240704
  7. FASTURTEC [Suspect]
     Active Substance: RASBURICASE
     Dosage: 7.5 MILLIGRAM, QD
     Route: 042
     Dates: start: 20240703, end: 20240704
  8. FASTURTEC [Suspect]
     Active Substance: RASBURICASE
     Dosage: 7.5 MILLIGRAM, QD
     Route: 042
     Dates: start: 20240703, end: 20240704
  9. LIDOCAINE\PRILOCAINE [Suspect]
     Active Substance: LIDOCAINE\PRILOCAINE
     Indication: Pain
     Dosage: 1 DOSAGE FORM, 1 DOSAGE TOTAL
     Route: 003
     Dates: start: 20240704, end: 20240704
  10. LIDOCAINE\PRILOCAINE [Suspect]
     Active Substance: LIDOCAINE\PRILOCAINE
     Dosage: 1 DOSAGE FORM, 1 DOSAGE TOTAL
     Route: 003
     Dates: start: 20240704, end: 20240704
  11. LIDOCAINE\PRILOCAINE [Suspect]
     Active Substance: LIDOCAINE\PRILOCAINE
     Dosage: 1 DOSAGE FORM, 1 DOSAGE TOTAL
     Route: 003
     Dates: start: 20240704, end: 20240704
  12. LIDOCAINE\PRILOCAINE [Suspect]
     Active Substance: LIDOCAINE\PRILOCAINE
     Dosage: 1 DOSAGE FORM, 1 DOSAGE TOTAL
     Route: 003
     Dates: start: 20240704, end: 20240704

REACTIONS (1)
  - Methaemoglobinaemia [Recovered/Resolved]

NARRATIVE: CASE EVENT DATE: 20240704
